FAERS Safety Report 25573986 (Version 4)
Quarter: 2025Q3

REPORT INFORMATION
  Report Type: Report from Study
  Country: US (occurrence: US)
  Receive Date: 20250717
  Receipt Date: 20250912
  Transmission Date: 20251021
  Serious: Yes (Hospitalization)
  Sender: SAREPTA THERAPEUTICS
  Company Number: US-SAREPTA THERAPEUTICS INC.-SRP2025-006225

PATIENT
  Age: 15 Year
  Sex: Male
  Weight: 32 kg

DRUGS (14)
  1. ELEVIDYS [Suspect]
     Active Substance: DELANDISTROGENE MOXEPARVOVEC-ROKL
     Indication: Duchenne muscular dystrophy
     Route: 042
     Dates: start: 20250514, end: 20250514
  2. ONDANSETRON [Concomitant]
     Active Substance: ONDANSETRON
     Indication: Nausea
     Route: 048
     Dates: start: 20250515
  3. ONDANSETRON [Concomitant]
     Active Substance: ONDANSETRON
     Indication: Vomiting
  4. POLYETHYLENE GLYCOLS [Concomitant]
     Active Substance: POLYETHYLENE GLYCOLS
     Indication: Constipation
     Route: 048
     Dates: start: 20250311
  5. ALBUTEROL SULFATE [Concomitant]
     Active Substance: ALBUTEROL SULFATE
     Indication: Restrictive pulmonary disease
     Dates: start: 20250212
  6. CYPROHEPTADINE [Concomitant]
     Active Substance: CYPROHEPTADINE
     Indication: Rhinovirus infection
     Dosage: 2 MILLIGRAM, BID
     Route: 048
     Dates: start: 20241002
  7. SENNA LEAF [Concomitant]
     Active Substance: SENNA LEAF
     Indication: Constipation
     Dosage: 17.2 MILLIGRAM, QD
     Route: 048
     Dates: start: 20241002
  8. LISINOPRIL [Concomitant]
     Active Substance: LISINOPRIL
     Indication: Cardiomyopathy
     Dosage: 5 MILLIGRAM, QD
     Route: 048
  9. FAMOTIDINE [Concomitant]
     Active Substance: FAMOTIDINE
     Indication: Metabolic acidosis
     Dosage: 20 MILLIGRAM, BID
     Route: 048
     Dates: start: 20240602, end: 20250602
  10. ZINC GLUCONATE [Concomitant]
     Active Substance: ZINC GLUCONATE
     Indication: Bone density decreased
     Dosage: 50 MILLIGRAM, QD
     Route: 048
     Dates: start: 20201120
  11. LORATADINE [Concomitant]
     Active Substance: LORATADINE
     Indication: Rhinovirus infection
     Dosage: 10 MILLIGRAM, QD
     Route: 048
     Dates: start: 20220511
  12. ZOLEDRONIC ACID [Concomitant]
     Active Substance: ZOLEDRONIC ACID
     Indication: Bone density decreased
     Route: 042
     Dates: start: 20220511
  13. CALCIUM [Concomitant]
     Active Substance: CALCIUM
     Indication: Bone density decreased
     Dosage: UNK, QD
     Route: 048
     Dates: start: 20240421
  14. PREDNISONE [Concomitant]
     Active Substance: PREDNISONE
     Indication: Product used for unknown indication

REACTIONS (1)
  - Liver injury [Recovered/Resolved]

NARRATIVE: CASE EVENT DATE: 20250625
